FAERS Safety Report 4355855-6 (Version None)
Quarter: 2004Q2

REPORT INFORMATION
  Report Type: 
  Country: None (occurrence: None)
  Receive Date: 20040507
  Receipt Date: 20040507
  Transmission Date: 20050107
  Serious: Yes (Life-Threatening, Other)
  Sender: FDA-Public Use
  Company Number: None

PATIENT
  Age: 40 Year
  Sex: Female
  Weight: 61.2356 kg

DRUGS (2)
  1. PAROXETINE HCL [Suspect]
     Indication: ANXIETY
     Dosage: 5-10 MG DAILY ORAL
     Route: 048
     Dates: start: 20040409, end: 20040505
  2. PAROXETINE HCL [Suspect]
     Indication: STRESS SYMPTOMS
     Dosage: 5-10 MG DAILY ORAL
     Route: 048
     Dates: start: 20040409, end: 20040505

REACTIONS (16)
  - ABNORMAL BEHAVIOUR [None]
  - AGITATION [None]
  - ANGER [None]
  - ANXIETY [None]
  - CONDITION AGGRAVATED [None]
  - DEPRESSION [None]
  - IMPATIENCE [None]
  - IMPULSIVE BEHAVIOUR [None]
  - LOSS OF EMPLOYMENT [None]
  - PARANOIA [None]
  - SPEECH DISORDER [None]
  - STRESS SYMPTOMS [None]
  - SUICIDAL IDEATION [None]
  - SUSPICIOUSNESS [None]
  - THINKING ABNORMAL [None]
  - TREATMENT NONCOMPLIANCE [None]
